FAERS Safety Report 13053903 (Version 3)
Quarter: 2017Q1

REPORT INFORMATION
  Report Type: Spontaneous
  Country: US (occurrence: US)
  Receive Date: 20161222
  Receipt Date: 20170118
  Transmission Date: 20170428
  Serious: Yes (Hospitalization, Other)
  Sender: FDA-Public Use
  Company Number: US-BAYER-2016-238467

PATIENT
  Age: 87 Year
  Sex: Male

DRUGS (6)
  1. ADEMPAS [Suspect]
     Active Substance: RIOCIGUAT
     Indication: PULMONARY HYPERTENSION
     Dosage: UNK
  2. XARELTO [Suspect]
     Active Substance: RIVAROXABAN
  3. COUMADIN [Suspect]
     Active Substance: WARFARIN SODIUM
     Indication: PRODUCT USED FOR UNKNOWN INDICATION
     Dosage: UNK
  4. OXYGEN. [Concomitant]
     Active Substance: OXYGEN
  5. ANTIBIOTICS [Concomitant]
     Active Substance: UNSPECIFIED INGREDIENT
  6. AMBRISENTAN [Suspect]
     Active Substance: AMBRISENTAN
     Indication: PULMONARY HYPERTENSION
     Dosage: 5 MG, QD

REACTIONS (6)
  - Fatigue [None]
  - Thrombosis [Not Recovered/Not Resolved]
  - Pleural effusion [Unknown]
  - Dizziness [Unknown]
  - Haemorrhage [Unknown]
  - Dyspnoea [None]
